FAERS Safety Report 6628369-8 (Version None)
Quarter: 2010Q1

REPORT INFORMATION
  Report Type: 
  Country: None (occurrence: None)
  Receive Date: 20100311
  Receipt Date: 20100304
  Transmission Date: 20100710
  Serious: Yes (Hospitalization)
  Sender: FDA-Public Use
  Company Number: IT-ELI_LILLY_AND_COMPANY-IT201003001271

PATIENT
  Sex: Male
  Weight: 64 kg

DRUGS (4)
  1. PEMETREXED [Suspect]
     Indication: NON-SMALL CELL LUNG CANCER
     Dosage: 500 MG/M2, UNKNOWN
     Route: 042
     Dates: end: 20100209
  2. CARBOPLATIN [Suspect]
     Indication: NON-SMALL CELL LUNG CANCER
     Dosage: AUC 5, UNKNOWN
     Route: 042
     Dates: end: 20100209
  3. DARBEPOETIN ALFA [Concomitant]
     Indication: ANAEMIA
     Dosage: 500 UG, UNKNOWN
     Route: 058
     Dates: start: 20100211, end: 20100211
  4. RED BLOOD CELLS [Concomitant]
     Indication: ANAEMIA
     Dates: start: 20100303

REACTIONS (1)
  - CEREBRAL ISCHAEMIA [None]
